FAERS Safety Report 18902297 (Version 1)
Quarter: 2021Q1

REPORT INFORMATION
  Report Type: Spontaneous
  Country: US (occurrence: US)
  Receive Date: 20210217
  Receipt Date: 20210217
  Transmission Date: 20210420
  Serious: No
  Sender: FDA-Public Use
  Company Number: US-PFIZER INC-2021116705

PATIENT
  Age: 63 Year
  Sex: Female

DRUGS (4)
  1. PREMARIN [Suspect]
     Active Substance: ESTROGENS, CONJUGATED
     Indication: VULVOVAGINAL DRYNESS
     Dosage: 2 G, WEEKLY
  2. PREMARIN [Suspect]
     Active Substance: ESTROGENS, CONJUGATED
     Dosage: 1 G, ONCE EVERY 2 WEEKS
     Route: 067
  3. PREMARIN [Suspect]
     Active Substance: ESTROGENS, CONJUGATED
     Indication: MENOPAUSAL SYMPTOMS
     Dosage: UNK
  4. PREMARIN [Suspect]
     Active Substance: ESTROGENS, CONJUGATED
     Dosage: 1 G, ONCE EVERY 2 WEEKS
     Route: 067

REACTIONS (9)
  - Swollen tongue [Unknown]
  - Therapeutic response unexpected [Unknown]
  - Glossodynia [Unknown]
  - Stomatitis [Not Recovered/Not Resolved]
  - Change of bowel habit [Unknown]
  - Intentional product misuse [Unknown]
  - Oral disorder [Unknown]
  - Coating in mouth [Unknown]
  - Tongue coated [Unknown]

NARRATIVE: CASE EVENT DATE: 20210203
